FAERS Safety Report 11570483 (Version 1)
Quarter: 2015Q3

REPORT INFORMATION
  Report Type: Spontaneous
  Country: US (occurrence: US)
  Receive Date: 20150916
  Receipt Date: 20150916
  Transmission Date: 20151125
  Serious: No
  Sender: FDA-Public Use
  Company Number: US-ELI_LILLY_AND_COMPANY-US200909002015

PATIENT
  Sex: Female

DRUGS (6)
  1. FORTEO [Suspect]
     Active Substance: TERIPARATIDE
     Dates: start: 200901
  2. RECLAST [Concomitant]
     Active Substance: ZOLEDRONIC ACID
  3. FORTEO [Suspect]
     Active Substance: TERIPARATIDE
     Dates: start: 200812, end: 200812
  4. VITAMIN D [Concomitant]
     Active Substance: CHOLECALCIFEROL
  5. FOSAMAX [Concomitant]
     Active Substance: ALENDRONATE SODIUM
  6. CALCIUM [Concomitant]
     Active Substance: CALCIUM

REACTIONS (7)
  - Throat irritation [Unknown]
  - Muscle spasms [Unknown]
  - Neck pain [Unknown]
  - Vertigo [Unknown]
  - Influenza like illness [Unknown]
  - Cough [Unknown]
  - Bone pain [Unknown]
